FAERS Safety Report 22661546 (Version 1)
Quarter: 2023Q2

REPORT INFORMATION
  Report Type: Spontaneous
  Country: US (occurrence: US)
  Receive Date: 20230630
  Receipt Date: 20230630
  Transmission Date: 20230721
  Serious: Yes (Death, Other)
  Sender: FDA-Public Use
  Company Number: US-AMGEN-USASP2023112018

PATIENT

DRUGS (1)
  1. CINACALCET HYDROCHLORIDE [Suspect]
     Active Substance: CINACALCET HYDROCHLORIDE
     Indication: Hyperparathyroidism secondary
     Dosage: UNK
     Route: 065

REACTIONS (5)
  - Death [Fatal]
  - Delayed graft function [Unknown]
  - Renal transplant failure [Unknown]
  - Hyperparathyroidism secondary [Unknown]
  - Hypercalcaemia [Unknown]
